FAERS Safety Report 4567682-5 (Version None)
Quarter: 2005Q1

REPORT INFORMATION
  Report Type: 
  Country: None (occurrence: None)
  Receive Date: 20050202
  Receipt Date: 20050120
  Transmission Date: 20050727
  Serious: Yes (Hospitalization)
  Sender: FDA-Public Use
  Company Number: US-JNJFOC-20050105829

PATIENT
  Sex: Female

DRUGS (19)
  1. INFLIXIMAB [Suspect]
     Indication: RHEUMATOID ARTHRITIS
     Route: 042
  2. PROVENTIL [Concomitant]
  3. COUMADIN [Concomitant]
  4. ZESTRIL [Concomitant]
  5. FOLIC ACID [Concomitant]
  6. LEXAPRO [Concomitant]
  7. LANOXIN [Concomitant]
  8. DETROL [Concomitant]
  9. METHOTREXATE [Concomitant]
  10. PREVACID [Concomitant]
  11. PREDNISONE [Concomitant]
  12. ULTRACET [Concomitant]
  13. XANAX [Concomitant]
  14. ZOCOR [Concomitant]
  15. ACTONEL [Concomitant]
  16. ARICEPT [Concomitant]
  17. LOTREL [Concomitant]
  18. LOTREL [Concomitant]
  19. CALCIUM +D [Concomitant]

REACTIONS (1)
  - DIARRHOEA [None]
